FAERS Safety Report 25983213 (Version 2)
Quarter: 2025Q4

REPORT INFORMATION
  Report Type: Report from Study
  Country: US (occurrence: US)
  Receive Date: 20251031
  Receipt Date: 20251114
  Transmission Date: 20260117
  Serious: No
  Sender: SANDOZ
  Company Number: US-SANDOZ-SDZ2025US080258

PATIENT
  Sex: Male

DRUGS (2)
  1. OMNITROPE [Suspect]
     Active Substance: SOMATROPIN
     Indication: Short stature
     Dosage: 2.6 MG, QD (STRENGTH10 MG/1.5 ML) EVERY SIX DAYS
     Route: 058
  2. OMNITROPE [Suspect]
     Active Substance: SOMATROPIN
     Indication: Short stature
     Dosage: 2.6 MG, QD (STRENGTH10 MG/1.5 ML) EVERY SIX DAYS
     Route: 058

REACTIONS (3)
  - Incorrect dose administered by device [Unknown]
  - Product use issue [Unknown]
  - Needle issue [Unknown]
